FAERS Safety Report 6497578-3 (Version None)
Quarter: 2009Q4

REPORT INFORMATION
  Report Type: 
  Country: None (occurrence: None)
  Receive Date: 20091215
  Receipt Date: 20091207
  Transmission Date: 20100525
  Serious: Yes (Other)
  Sender: FDA-Public Use
  Company Number: BR-JNJFOC-20091107859

PATIENT
  Age: 75 Year
  Sex: Female
  Weight: 36 kg

DRUGS (3)
  1. TYLEX [Suspect]
     Indication: PAIN
     Route: 065
  2. DIPYRONE [Concomitant]
     Indication: PYREXIA
  3. MULTI-VITAMINS [Concomitant]
     Indication: NUTRITIONAL SUPPORT

REACTIONS (5)
  - DELIRIUM [None]
  - HEADACHE [None]
  - SOMNOLENCE [None]
  - TONGUE DISORDER [None]
  - VOMITING [None]
